FAERS Safety Report 9993908 (Version 1)
Quarter: 2014Q1

REPORT INFORMATION
  Report Type: Spontaneous
  Country: US (occurrence: US)
  Receive Date: 20140310
  Receipt Date: 20140310
  Transmission Date: 20141002
  Serious: Yes (Disabling)
  Sender: FDA-Public Use
  Company Number: US-AMGEN-USASP2013028265

PATIENT
  Sex: Male

DRUGS (3)
  1. SENSIPAR [Suspect]
     Indication: HYPERPARATHYROIDISM SECONDARY
     Dosage: 90 MG ONCE DAILY, 7 DAYS /WEEK
     Dates: start: 20121008
  2. SENSIPAR [Suspect]
  3. SENSIPAR [Suspect]

REACTIONS (1)
  - Diarrhoea [Not Recovered/Not Resolved]
